FAERS Safety Report 6371670-6 (Version None)
Quarter: 2009Q3

REPORT INFORMATION
  Report Type: 
  Country: None (occurrence: None)
  Receive Date: 20090923
  Receipt Date: 20080902
  Transmission Date: 20100115
  Serious: Yes (Other)
  Sender: FDA-Public Use
  Company Number: US-ASTRAZENECA-2008UW10021

PATIENT
  Age: 582 Month
  Sex: Male
  Weight: 119.7 kg

DRUGS (8)
  1. SEROQUEL [Suspect]
     Indication: SCHIZOAFFECTIVE DISORDER
     Dosage: 200 MG AND 400 MG
     Route: 048
     Dates: start: 20020301, end: 20070701
  2. HALDOL [Concomitant]
     Dosage: LATE 1990'S
  3. ZOLOFT [Concomitant]
     Dates: start: 20030101, end: 20041101
  4. METFORMIN HCL [Concomitant]
     Dates: start: 20061101
  5. VYTORIN [Concomitant]
  6. ABILIFY [Concomitant]
     Dates: start: 20070601
  7. RISPERDAL [Concomitant]
     Dates: start: 20020201, end: 20060901
  8. ZYPREXA [Concomitant]
     Dosage: TOOK IT FOR A COUPLE OF MONTHS IN THE LATE 1990'S

REACTIONS (9)
  - BLOOD CHOLESTEROL INCREASED [None]
  - CHRONIC OBSTRUCTIVE PULMONARY DISEASE [None]
  - DIABETES MELLITUS [None]
  - HEADACHE [None]
  - HEPATIC FUNCTION ABNORMAL [None]
  - MUSCLE SPASMS [None]
  - ONYCHOMYCOSIS [None]
  - SUICIDAL IDEATION [None]
  - WEIGHT INCREASED [None]
